FAERS Safety Report 13262068 (Version 1)
Quarter: 2017Q1

REPORT INFORMATION
  Report Type: Spontaneous
  Country: US (occurrence: US)
  Receive Date: 20170222
  Receipt Date: 20170222
  Transmission Date: 20170428
  Serious: No
  Sender: FDA-Public Use
  Company Number: US-AMNEAL PHARMACEUTICALS-2016AMN00173

PATIENT
  Age: 53 Year
  Sex: Male
  Weight: 92.97 kg

DRUGS (3)
  1. VITAMINS [Concomitant]
     Active Substance: VITAMINS
     Dosage: UNK
  2. METFORMIN HYDROCHLORIDE. [Suspect]
     Active Substance: METFORMIN HYDROCHLORIDE
     Indication: TYPE 2 DIABETES MELLITUS
     Dosage: 1000 MG, 2X/DAY(TAKES 2 TIMES IN THE MORNING AND 2 IN THE EVENING).
     Route: 048
     Dates: start: 201508
  3. ASPIRIN. [Concomitant]
     Active Substance: ASPIRIN
     Indication: PROPHYLAXIS
     Dosage: UNK, 1X/DAY

REACTIONS (4)
  - Hyperhidrosis [Not Recovered/Not Resolved]
  - Feeling abnormal [Not Recovered/Not Resolved]
  - Medication residue present [Not Recovered/Not Resolved]
  - Drug ineffective [Not Recovered/Not Resolved]

NARRATIVE: CASE EVENT DATE: 201508
